FAERS Safety Report 7495525-9 (Version None)
Quarter: 2011Q2

REPORT INFORMATION
  Report Type: 
  Country: None (occurrence: None)
  Receive Date: 20110523
  Receipt Date: 20110511
  Transmission Date: 20111010
  Serious: Yes (Other)
  Sender: FDA-Public Use
  Company Number: FR-JNJFOC-20110506582

PATIENT
  Age: 42 Year
  Sex: Male

DRUGS (2)
  1. RISPERDAL CONSTA [Suspect]
     Indication: PRODUCT USED FOR UNKNOWN INDICATION
     Route: 030
  2. TERCIAN [Concomitant]

REACTIONS (4)
  - FATIGUE [None]
  - SUICIDAL IDEATION [None]
  - DEPRESSION [None]
  - PAIN IN EXTREMITY [None]
